FAERS Safety Report 20561045 (Version 1)
Quarter: 2022Q1

REPORT INFORMATION
  Report Type: Spontaneous
  Country: CN (occurrence: CN)
  Receive Date: 20220307
  Receipt Date: 20220307
  Transmission Date: 20220423
  Serious: Yes (Hospitalization, Other)
  Sender: FDA-Public Use
  Company Number: CN-PFIZER INC-202200334248

PATIENT
  Age: 25 Year
  Sex: Male
  Weight: 63 kg

DRUGS (2)
  1. CYTARABINE [Suspect]
     Active Substance: CYTARABINE
     Indication: Symptomatic treatment
     Dosage: 200 MG, 1X/DAY
     Route: 041
     Dates: start: 20220210, end: 20220216
  2. IDARUBICIN [Concomitant]
     Active Substance: IDARUBICIN
     Indication: Symptomatic treatment
     Dosage: 20 MG, 1X/DAY
     Route: 041
     Dates: start: 20220210, end: 20220212

REACTIONS (1)
  - Febrile neutropenia [Not Recovered/Not Resolved]

NARRATIVE: CASE EVENT DATE: 20220215
